FAERS Safety Report 23846084 (Version 4)
Quarter: 2025Q3

REPORT INFORMATION
  Report Type: Other
  Country: US (occurrence: US)
  Receive Date: 20240512
  Receipt Date: 20250917
  Transmission Date: 20251021
  Serious: No
  Sender: TRAVERE THERAPEUTICS
  Company Number: US-TRAVERE-2024TVT00403

PATIENT
  Age: 39 Year
  Sex: Female

DRUGS (8)
  1. FILSPARI [Suspect]
     Active Substance: SPARSENTAN
     Indication: IgA nephropathy
     Route: 048
     Dates: start: 20240416, end: 20250718
  2. FILSPARI [Suspect]
     Active Substance: SPARSENTAN
     Indication: Anaemia
  3. FILSPARI [Suspect]
     Active Substance: SPARSENTAN
     Indication: Chronic kidney disease
  4. FILSPARI [Suspect]
     Active Substance: SPARSENTAN
     Indication: Hypertension
  5. FILSPARI [Suspect]
     Active Substance: SPARSENTAN
     Indication: Nephrotic syndrome
  6. FILSPARI [Suspect]
     Active Substance: SPARSENTAN
     Indication: Focal segmental glomerulosclerosis
  7. FILSPARI [Suspect]
     Active Substance: SPARSENTAN
     Indication: Proteinuria
  8. FILSPARI [Suspect]
     Active Substance: SPARSENTAN
     Indication: Haematuria

REACTIONS (4)
  - Dyspepsia [Unknown]
  - Abdominal pain upper [Unknown]
  - Protein urine present [None]
  - Renal impairment [Unknown]

NARRATIVE: CASE EVENT DATE: 20240422
